FAERS Safety Report 6966332-8 (Version None)
Quarter: 2010Q3

REPORT INFORMATION
  Report Type: 
  Country: None (occurrence: None)
  Receive Date: 20100903
  Receipt Date: 20100825
  Transmission Date: 20110219
  Serious: Yes (Other)
  Sender: FDA-Public Use
  Company Number: JP-ROCHE-679160

PATIENT
  Sex: Female
  Weight: 54 kg

DRUGS (11)
  1. TOCILIZUMAB [Suspect]
     Indication: RHEUMATOID ARTHRITIS
     Route: 041
     Dates: start: 20091111, end: 20091111
  2. TOCILIZUMAB [Suspect]
     Route: 041
     Dates: start: 20100127, end: 20100127
  3. TOCILIZUMAB [Suspect]
     Route: 041
     Dates: start: 20100224, end: 20100224
  4. TOCILIZUMAB [Suspect]
     Route: 041
     Dates: start: 20100324, end: 20100324
  5. TOCILIZUMAB [Suspect]
     Route: 041
     Dates: start: 20100421, end: 20100421
  6. TOCILIZUMAB [Suspect]
     Route: 041
     Dates: start: 20100519
  7. RHEUMATREX [Concomitant]
     Route: 048
  8. PREDONINE [Concomitant]
     Route: 048
  9. CELECOXIB [Concomitant]
     Dosage: DRUG NAME:CELECOX.
     Route: 048
  10. MUCOSTA [Concomitant]
     Dosage: DOSE FORM: PERORAL AGENT.
     Route: 048
  11. ACTONEL [Concomitant]
     Route: 048

REACTIONS (3)
  - ABSCESS LIMB [None]
  - EXTREMITY NECROSIS [None]
  - POSTOPERATIVE WOUND INFECTION [None]
